FAERS Safety Report 7699501-2 (Version None)
Quarter: 2011Q3

REPORT INFORMATION
  Report Type: 
  Country: None (occurrence: None)
  Receive Date: 20110820
  Receipt Date: 20110420
  Transmission Date: 20111222
  Serious: No
  Sender: FDA-Public Use
  Company Number: US-ALLERGAN-1105584US

PATIENT
  Age: 84 Year
  Sex: Male

DRUGS (1)
  1. SANCTURA XR [Suspect]
     Indication: POLLAKIURIA
     Dosage: UNK
     Route: 048

REACTIONS (1)
  - MUSCULAR WEAKNESS [None]
